FAERS Safety Report 19253199 (Version 1)
Quarter: 2021Q2

REPORT INFORMATION
  Report Type: Spontaneous
  Country: BR (occurrence: BR)
  Receive Date: 20210513
  Receipt Date: 20210513
  Transmission Date: 20210717
  Serious: Yes (Hospitalization, Other)
  Sender: FDA-Public Use
  Company Number: BR-SUN PHARMACEUTICAL INDUSTRIES LTD-2021R1-296446

PATIENT
  Age: 39 Year
  Sex: Female

DRUGS (1)
  1. DOXEPIN [Suspect]
     Active Substance: DOXEPIN
     Indication: ANXIETY DISORDER
     Dosage: UNK
     Route: 065

REACTIONS (6)
  - Gestational hypertension [Unknown]
  - Hyperuricaemia [Unknown]
  - Pneumonia [Unknown]
  - Thrombocytopenia [Unknown]
  - Oligohydramnios [Unknown]
  - Exposure during pregnancy [Unknown]
